FAERS Safety Report 12909312 (Version 6)
Quarter: 2017Q2

REPORT INFORMATION
  Report Type: Spontaneous
  Country: CA (occurrence: CA)
  Receive Date: 20161104
  Receipt Date: 20170508
  Transmission Date: 20170830
  Serious: Yes (Life-Threatening, Other)
  Sender: FDA-Public Use
  Company Number: CA-ROCHE-1849991

PATIENT
  Age: 75 Year
  Sex: Male

DRUGS (4)
  1. XOLAIR [Suspect]
     Active Substance: OMALIZUMAB
     Indication: ASTHMA
     Route: 058
     Dates: start: 20130301
  2. XOLAIR [Suspect]
     Active Substance: OMALIZUMAB
     Route: 058
     Dates: start: 20170412
  3. XOLAIR [Suspect]
     Active Substance: OMALIZUMAB
     Route: 058
     Dates: start: 20161013
  4. XOLAIR [Suspect]
     Active Substance: OMALIZUMAB
     Route: 058
     Dates: start: 20161027

REACTIONS (10)
  - Fear of injection [Unknown]
  - Terminal state [Unknown]
  - Respiratory rate increased [Unknown]
  - Parkinson^s disease [Unknown]
  - Drug ineffective [Unknown]
  - Somnolence [Unknown]
  - Dementia Alzheimer^s type [Unknown]
  - Blood pressure increased [Unknown]
  - Pain in extremity [Unknown]
  - Autonomic nervous system imbalance [Unknown]

NARRATIVE: CASE EVENT DATE: 201402
